FAERS Safety Report 9555641 (Version 1)
Quarter: 2013Q3

REPORT INFORMATION
  Report Type: Spontaneous
  Country: GB (occurrence: None)
  Receive Date: 20130806
  Receipt Date: 20130806
  Transmission Date: 20140515
  Serious: Yes (Hospitalization, Other)
  Sender: FDA-Public Use
  Company Number: 2013GMK005900

PATIENT
  Age: 69 Year
  Sex: Male
  Weight: 71 kg

DRUGS (7)
  1. PRAMIPEXOLE [Suspect]
     Indication: PARKINSON^S DISEASE
     Dosage: 1.05 MG, UNK , ORAL
     Route: 048
     Dates: start: 20130508
  2. AMITRIPTYLINE (AMITRIPTYLINE) [Concomitant]
  3. CITALOPRAM (CITALOPRAM) [Concomitant]
  4. ESOMEPRAZOLE (ESOMEPRAZOLE) [Concomitant]
  5. FESOTERODINE (FESOTERODINE) [Concomitant]
  6. FUROSEMIDE (FUROSEMIDE) [Concomitant]
  7. SINEMET (CARBIDOPA, LEVODOPA) [Concomitant]
     Dosage: 1.05 MG, UNK, ORAL
     Route: 048
     Dates: end: 20130508

REACTIONS (1)
  - Oedema peripheral [None]
